FAERS Safety Report 24072697 (Version 2)
Quarter: 2024Q3

REPORT INFORMATION
  Report Type: Report from Study
  Country: US (occurrence: US)
  Receive Date: 20240710
  Receipt Date: 20240806
  Transmission Date: 20241017
  Serious: Yes (Other)
  Sender: BAYER
  Company Number: US-BAYER-2024A095884

PATIENT
  Age: 53 Year
  Sex: Female
  Weight: 87.528 kg

DRUGS (16)
  1. ADEMPAS [Suspect]
     Active Substance: RIOCIGUAT
     Indication: Pulmonary arterial hypertension
     Dosage: UNK
     Route: 048
     Dates: start: 20221104
  2. ADEMPAS [Suspect]
     Active Substance: RIOCIGUAT
     Indication: Pulmonary arterial hypertension
     Dosage: 2.5 MG, TID
     Route: 048
  3. ADEMPAS [Suspect]
     Active Substance: RIOCIGUAT
     Indication: Pulmonary arterial hypertension
     Dosage: 2.5 MG, TID
     Route: 048
  4. METOPROLOL TARTRATE [Concomitant]
     Active Substance: METOPROLOL TARTRATE
  5. UPTRAVI [Concomitant]
     Active Substance: SELEXIPAG
  6. SPIRONOLACTONE [Concomitant]
     Active Substance: SPIRONOLACTONE
  7. MAGNESIUM [Concomitant]
     Active Substance: MAGNESIUM
  8. OPSUMIT [Concomitant]
     Active Substance: MACITENTAN
  9. POTASSIUM [Concomitant]
     Active Substance: POTASSIUM
  10. LOVENOX [Concomitant]
     Active Substance: ENOXAPARIN SODIUM
  11. VITAMINS [Concomitant]
     Active Substance: VITAMINS
  12. TIKOSYN [Concomitant]
     Active Substance: DOFETILIDE
  13. BUMETANIDE [Concomitant]
     Active Substance: BUMETANIDE
  14. OXYGEN [Concomitant]
     Active Substance: OXYGEN
  15. BENADRYL ALLERGY [Concomitant]
     Active Substance: DIPHENHYDRAMINE HYDROCHLORIDE
  16. LATANOPROST [Concomitant]
     Active Substance: LATANOPROST

REACTIONS (4)
  - Deafness [Not Recovered/Not Resolved]
  - Dizziness [None]
  - Diarrhoea [Not Recovered/Not Resolved]
  - Nausea [Not Recovered/Not Resolved]

NARRATIVE: CASE EVENT DATE: 20240729
